FAERS Safety Report 13035275 (Version 1)
Quarter: 2016Q4

REPORT INFORMATION
  Report Type: Spontaneous
  Country: US (occurrence: US)
  Receive Date: 20161216
  Receipt Date: 20161216
  Transmission Date: 20170207
  Serious: No
  Sender: FDA-Public Use
  Company Number: US-009507513-1612USA001729

PATIENT
  Sex: Female

DRUGS (2)
  1. NUVARING [Suspect]
     Active Substance: ETHINYL ESTRADIOL\ETONOGESTREL
     Dosage: UNK
     Route: 067
     Dates: start: 20161130
  2. NUVARING [Suspect]
     Active Substance: ETHINYL ESTRADIOL\ETONOGESTREL
     Indication: CYST
     Dosage: UNK
     Route: 067
     Dates: start: 20161128, end: 20161128

REACTIONS (4)
  - Product use issue [Unknown]
  - Intentional medical device removal by patient [Unknown]
  - Inappropriate schedule of drug administration [Unknown]
  - Migraine [Unknown]

NARRATIVE: CASE EVENT DATE: 20161128
